FAERS Safety Report 5335272-2 (Version None)
Quarter: 2007Q2

REPORT INFORMATION
  Report Type: 
  Country: None (occurrence: None)
  Receive Date: 20070525
  Receipt Date: 20070516
  Transmission Date: 20071010
  Serious: Yes (Other)
  Sender: FDA-Public Use
  Company Number: US-PFIZER INC-2007025773

PATIENT
  Sex: Male
  Weight: 80.7 kg

DRUGS (3)
  1. LIPITOR [Suspect]
     Indication: BLOOD CHOLESTEROL INCREASED
     Dates: start: 19990701, end: 20070201
  2. AMIODARONE HCL [Suspect]
     Indication: CARDIAC DISORDER
  3. WARFARIN SODIUM [Concomitant]

REACTIONS (4)
  - GAIT DISTURBANCE [None]
  - LIVER FUNCTION TEST ABNORMAL [None]
  - MUSCULAR WEAKNESS [None]
  - WEIGHT DECREASED [None]
